FAERS Safety Report 12879467 (Version 2)
Quarter: 2016Q4

REPORT INFORMATION
  Report Type: Spontaneous
  Country: US (occurrence: US)
  Receive Date: 20161025
  Receipt Date: 20161028
  Transmission Date: 20170207
  Serious: Yes (Other)
  Sender: FDA-Public Use
  Company Number: US-LUPIN PHARMACEUTICALS INC.-2016-04677

PATIENT
  Age: 36 Year
  Sex: Female

DRUGS (2)
  1. AMLODIPINE BESYLATE TABLETS 10 MG [Suspect]
     Active Substance: AMLODIPINE BESYLATE
     Dosage: HALF DOSE
     Route: 065
  2. AMLODIPINE BESYLATE TABLETS 10 MG [Suspect]
     Active Substance: AMLODIPINE BESYLATE
     Indication: HYPERTENSION
     Route: 065
     Dates: start: 20160922

REACTIONS (12)
  - Hypertension [Unknown]
  - Flushing [Unknown]
  - Generalised erythema [Unknown]
  - Drug ineffective [Unknown]
  - Chest pain [Unknown]
  - Paraesthesia [Unknown]
  - Pain [Unknown]
  - Influenza like illness [Unknown]
  - Hypoaesthesia oral [Unknown]
  - Feeling abnormal [Unknown]
  - Feeling of body temperature change [Unknown]
  - Tremor [Unknown]
